FAERS Safety Report 6190002-X (Version None)
Quarter: 2009Q2

REPORT INFORMATION
  Report Type: 
  Country: None (occurrence: None)
  Receive Date: 20090514
  Receipt Date: 20090507
  Transmission Date: 20091009
  Serious: Yes (Other)
  Sender: FDA-Public Use
  Company Number: PHEH2009US04550

PATIENT
  Sex: Female
  Weight: 61.224 kg

DRUGS (1)
  1. ZOMETA [Suspect]
     Indication: BREAST CANCER METASTATIC
     Dosage: 4 MG, QMO
     Route: 042
     Dates: start: 20090428, end: 20090428

REACTIONS (2)
  - DYSPHONIA [None]
  - SWOLLEN TONGUE [None]
